FAERS Safety Report 9961385 (Version 1)
Quarter: 2014Q1

REPORT INFORMATION
  Report Type: Other
  Country: US (occurrence: US)
  Receive Date: 20140305
  Receipt Date: 20140305
  Transmission Date: 20141002
  Serious: Yes (Death)
  Sender: FDA-Public Use
  Company Number: US-SHIRE-US201400231

PATIENT
  Sex: 0

DRUGS (2)
  1. FOSRENOL [Suspect]
     Indication: PRODUCT USED FOR UNKNOWN INDICATION
     Dosage: 2000 MG, OTHER (2/ 1000MG  TABLETS 3 TIMES DAILY WITH MEALS)
     Route: 048
  2. FOSRENOL [Suspect]
     Dosage: 1000 MG, OTHER (ONE 1000 MG TABLET, TWICE DAILY WITH SNACKS)
     Route: 048

REACTIONS (2)
  - Death [Fatal]
  - Prescribed overdose [Not Recovered/Not Resolved]
